FAERS Safety Report 7150747-1 (Version None)
Quarter: 2010Q4

REPORT INFORMATION
  Report Type: 
  Country: None (occurrence: None)
  Receive Date: 20101210
  Receipt Date: 20101130
  Transmission Date: 20110411
  Serious: Yes (Other)
  Sender: FDA-Public Use
  Company Number: US-RB-015982-10

PATIENT
  Age: 26 Year
  Sex: Female

DRUGS (1)
  1. DELSYM [Suspect]
     Indication: COUGH
     Dosage: PATIENT TOOK 10ML AT 1PM ANOTHER DOSE ANOTHER 8-8.5 HOURS LATER
     Route: 048

REACTIONS (18)
  - ANXIETY [None]
  - DISORIENTATION [None]
  - DIZZINESS [None]
  - DRUG INEFFECTIVE [None]
  - DYSPHAGIA [None]
  - DYSPNOEA [None]
  - FATIGUE [None]
  - FEELING ABNORMAL [None]
  - HALLUCINATION [None]
  - HANGOVER [None]
  - HEART RATE INCREASED [None]
  - HYPERHIDROSIS [None]
  - HYPERVIGILANCE [None]
  - INAPPROPRIATE SCHEDULE OF DRUG ADMINISTRATION [None]
  - MYDRIASIS [None]
  - PRURITUS GENERALISED [None]
  - RESTLESSNESS [None]
  - VISION BLURRED [None]
